FAERS Safety Report 21421553 (Version 2)
Quarter: 2022Q4

REPORT INFORMATION
  Report Type: Spontaneous
  Country: JP (occurrence: JP)
  Receive Date: 20221007
  Receipt Date: 20221221
  Transmission Date: 20230113
  Serious: Yes (Hospitalization, Other)
  Sender: FDA-Public Use
  Company Number: JP-ELI_LILLY_AND_COMPANY-JP202209013369AA

PATIENT
  Age: 67 Year
  Sex: Male
  Weight: 52.1 kg

DRUGS (3)
  1. CYRAMZA [Suspect]
     Active Substance: RAMUCIRUMAB
     Indication: Gastric cancer stage III
     Dosage: 300 MG, OTHER
     Route: 041
     Dates: start: 20220803
  2. TAXOL [Suspect]
     Active Substance: PACLITAXEL
     Indication: Gastric cancer stage III
     Dosage: 100 MG, OTHER
     Route: 041
     Dates: start: 20220803
  3. METHYLCOBALAMIN [Concomitant]
     Active Substance: METHYLCOBALAMIN
     Indication: Vitamin B12 deficiency
     Dosage: 500 UG, WEEKLY (1/W)
     Route: 041
     Dates: start: 20220725, end: 20220817

REACTIONS (3)
  - Interstitial lung disease [Recovering/Resolving]
  - Cardiac failure chronic [Recovered/Resolved]
  - Pneumonia [Recovering/Resolving]

NARRATIVE: CASE EVENT DATE: 20220818
